FAERS Safety Report 6501168-3 (Version None)
Quarter: 2009Q4

REPORT INFORMATION
  Report Type: 
  Country: None (occurrence: None)
  Receive Date: 20091216
  Receipt Date: 20090827
  Transmission Date: 20100525
  Serious: No
  Sender: FDA-Public Use
  Company Number: A0804671A

PATIENT
  Age: 33 Year
  Sex: Female

DRUGS (1)
  1. COMMIT [Suspect]
     Dates: start: 20090822, end: 20090826

REACTIONS (6)
  - ABDOMINAL DISTENSION [None]
  - ABDOMINAL PAIN LOWER [None]
  - BACK PAIN [None]
  - EXPIRED DRUG ADMINISTERED [None]
  - FLATULENCE [None]
  - MUSCLE SPASMS [None]
